FAERS Safety Report 9365632 (Version 1)
Quarter: 2013Q2

REPORT INFORMATION
  Report Type: Spontaneous
  Country: US (occurrence: None)
  Receive Date: 20130624
  Receipt Date: 20130624
  Transmission Date: 20140414
  Serious: Yes (Hospitalization)
  Sender: FDA-Public Use
  Company Number: None

PATIENT
  Age: 64 Year
  Sex: 0
  Weight: 50 kg

DRUGS (1)
  1. CEFEPIME [Suspect]
     Dosage: 2G Q12H IV BOLUS
     Route: 042
     Dates: start: 20130529, end: 20130612

REACTIONS (3)
  - Muscle twitching [None]
  - Asthenia [None]
  - Hyponatraemia [None]
